FAERS Safety Report 7047284-1 (Version None)
Quarter: 2010Q4

REPORT INFORMATION
  Report Type: 
  Country: None (occurrence: None)
  Receive Date: 20101014
  Receipt Date: 20101014
  Transmission Date: 20110411
  Serious: Yes (Other)
  Sender: FDA-Public Use
  Company Number: None

PATIENT
  Sex: Female
  Weight: 74.8435 kg

DRUGS (5)
  1. BUPROPION HCL [Suspect]
     Indication: ANXIETY
     Dosage: 1 DAILY 047
     Dates: start: 20100721, end: 20100823
  2. BUPROPION HCL [Suspect]
     Indication: ANXIETY
     Dosage: 1 DAILY 047
     Dates: start: 20100823, end: 20101012
  3. BUPROPION HCL [Suspect]
     Dosage: 1 DAILY 047
     Dates: start: 20080925, end: 20081025
  4. BUPROPION HCL [Suspect]
  5. BUPROPION HCL [Suspect]

REACTIONS (18)
  - ABDOMINAL PAIN UPPER [None]
  - AMNESIA [None]
  - ARTHRALGIA [None]
  - DECREASED APPETITE [None]
  - DEPRESSION [None]
  - DISTURBANCE IN ATTENTION [None]
  - DRY MOUTH [None]
  - ERYTHEMA [None]
  - FEELINGS OF WORTHLESSNESS [None]
  - FLATULENCE [None]
  - HEADACHE [None]
  - HEARING IMPAIRED [None]
  - INSOMNIA [None]
  - MENSTRUAL DISORDER [None]
  - OROPHARYNGEAL PAIN [None]
  - PRODUCT SUBSTITUTION ISSUE [None]
  - TINNITUS [None]
  - VISION BLURRED [None]
